FAERS Safety Report 12111848 (Version 1)
Quarter: 2016Q1

REPORT INFORMATION
  Report Type: Not Available
  Country: AU (occurrence: AU)
  Receive Date: 20160224
  Receipt Date: 20160224
  Transmission Date: 20160526
  Serious: Yes (Hospitalization)
  Sender: FDA-Public Use
  Company Number: AU-ANIPHARMA-2016-AU-000002

PATIENT
  Age: 50 Year
  Sex: Female

DRUGS (8)
  1. FLUOXETINE HYDROCHLORIDE (NON-SPECIFIC) [Suspect]
     Active Substance: FLUOXETINE HYDROCHLORIDE
  2. ELETRIPTAN [Suspect]
     Active Substance: ELETRIPTAN
     Dosage: 4 MG ONCE TO TWICE PER DAY
  3. HYDROCHLOROTHIAZIDE. [Concomitant]
     Active Substance: HYDROCHLOROTHIAZIDE
  4. ATORVASTATIN [Concomitant]
     Active Substance: ATORVASTATIN
  5. PANADEINE FORTE [Concomitant]
     Active Substance: ACETAMINOPHEN\CODEINE PHOSPHATE
  6. IRBESARTAN. [Concomitant]
     Active Substance: IRBESARTAN
  7. TRAMADOL. [Suspect]
     Active Substance: TRAMADOL
     Dosage: 100 MG DAILY
  8. METOCLOPRAMIDE (NON-SPECIFIC) [Suspect]
     Active Substance: METOCLOPRAMIDE
     Dosage: 10 MG FOUR TIMES DAILY

REACTIONS (2)
  - Cerebrovascular accident [Unknown]
  - Reversible cerebral vasoconstriction syndrome [Unknown]
